FAERS Safety Report 12902318 (Version 1)
Quarter: 2016Q4

REPORT INFORMATION
  Report Type: Spontaneous
  Country: US (occurrence: US)
  Receive Date: 20161031
  Receipt Date: 20161031
  Transmission Date: 20170207
  Serious: No
  Sender: FDA-Public Use
  Company Number: None

PATIENT
  Age: 44 Year
  Sex: Female
  Weight: 141.75 kg

DRUGS (10)
  1. METFORMIN [Concomitant]
     Active Substance: METFORMIN HYDROCHLORIDE
  2. MAGNESIUM [Concomitant]
     Active Substance: MAGNESIUM
  3. CAYENNE PEPPER [Concomitant]
     Active Substance: CAPSICUM
  4. VITAMIN B12 [Concomitant]
     Active Substance: CYANOCOBALAMIN
  5. METOPROLOL. [Concomitant]
     Active Substance: METOPROLOL
  6. LOSARTAN. [Concomitant]
     Active Substance: LOSARTAN
  7. BYDUREON [Suspect]
     Active Substance: EXENATIDE
     Indication: TYPE 2 DIABETES MELLITUS
     Dosage: ?          QUANTITY:2 INJECTION(S);OTHER FREQUENCY:ONCE WEEKLY;?
     Route: 058
     Dates: start: 20161004, end: 20161011
  8. BUPROPION. [Concomitant]
     Active Substance: BUPROPION
  9. POTASSIUM [Concomitant]
     Active Substance: POTASSIUM
  10. BENFOTIAMINE [Concomitant]
     Active Substance: BENFOTIAMINE

REACTIONS (3)
  - Balance disorder [None]
  - Fall [None]
  - Dizziness postural [None]

NARRATIVE: CASE EVENT DATE: 20161005
